FAERS Safety Report 6163745-1 (Version None)
Quarter: 2009Q2

REPORT INFORMATION
  Report Type: 
  Country: None (occurrence: None)
  Receive Date: 20090420
  Receipt Date: 20090420
  Transmission Date: 20091009
  Serious: Yes (Death, Life-Threatening, Hospitalization)
  Sender: FDA-Public Use
  Company Number: None

PATIENT
  Sex: Male
  Weight: 115 kg

DRUGS (2)
  1. ZYPREXA [Suspect]
     Indication: DEPRESSION
     Dosage: 10MG PO DAILY
     Route: 048
     Dates: start: 20060101, end: 20080101
  2. LEXAPRO [Concomitant]

REACTIONS (7)
  - ANAEMIA [None]
  - BRAIN DEATH [None]
  - CARDIAC ARREST [None]
  - DIABETIC KETOACIDOSIS [None]
  - ELECTROMECHANICAL DISSOCIATION [None]
  - FALL [None]
  - PANCREATITIS [None]
